FAERS Safety Report 4629876-X (Version None)
Quarter: 2005Q2

REPORT INFORMATION
  Report Type: 
  Country: None (occurrence: None)
  Receive Date: 20050407
  Receipt Date: 20050324
  Transmission Date: 20051028
  Serious: Yes (Life-Threatening)
  Sender: FDA-Public Use
  Company Number: 2005049663

PATIENT
  Age: 5 Year
  Sex: Male
  Weight: 17 kg

DRUGS (7)
  1. SOLU-MEDROL [Suspect]
     Indication: ILL-DEFINED DISORDER
     Dosage: 20 MG (1 IN 1 D), INTRAVENOUS
     Route: 042
     Dates: start: 20050203, end: 20050207
  2. IBUPROFEN [Suspect]
     Indication: ILL-DEFINED DISORDER
     Dosage: 51 MG (3 IN 1 D), ORAL
     Route: 048
     Dates: start: 20050130, end: 20050211
  3. ACETYLSALICYLIC ACID SRT [Suspect]
     Indication: ILL-DEFINED DISORDER
     Dosage: 75 MG (1 IN 1 D), ORAL
     Route: 048
     Dates: start: 20050210, end: 20050214
  4. AMOXICILLIN W/CLAVULANATE POTASSIUM (AMOXICILLIN, CLAVULANATE POTASSIU [Concomitant]
  5. JOSAMYCIN (JOSAMYCIN) [Concomitant]
  6. AMOXICILLIN TRIHYDRATE [Concomitant]
  7. AMIKACIN [Concomitant]

REACTIONS (5)
  - CONDITION AGGRAVATED [None]
  - INFECTION [None]
  - PNEUMOTHORAX [None]
  - PULMONARY NECROSIS [None]
  - THERAPY NON-RESPONDER [None]
